FAERS Safety Report 10141786 (Version 3)
Quarter: 2014Q2

REPORT INFORMATION
  Report Type: Report from Study
  Country: AU (occurrence: AU)
  Receive Date: 20140429
  Receipt Date: 20140520
  Transmission Date: 20141212
  Serious: Yes (Other)
  Sender: FDA-Public Use
  Company Number: AU-BRISTOL-MYERS SQUIBB COMPANY-20301586

PATIENT
  Age: 68 Year
  Sex: Male

DRUGS (10)
  1. ORENCIA [Suspect]
     Indication: RHEUMATOID ARTHRITIS
     Route: 042
  2. FLUVAX [Suspect]
  3. METHOTREXATE [Concomitant]
  4. FOLIC ACID [Concomitant]
  5. PREDNISONE [Concomitant]
  6. OXYCODONE [Concomitant]
  7. PHENERGAN [Concomitant]
  8. FENTANYL [Concomitant]
  9. VENTOLIN [Concomitant]
  10. TRAMADOL [Concomitant]

REACTIONS (5)
  - Fall [Recovered/Resolved]
  - Soft tissue injury [Recovered/Resolved]
  - Forearm fracture [Recovering/Resolving]
  - Influenza like illness [Recovered/Resolved]
  - Pain [Recovering/Resolving]
